FAERS Safety Report 20246771 (Version 1)
Quarter: 2021Q4

REPORT INFORMATION
  Report Type: Spontaneous
  Country: US (occurrence: None)
  Receive Date: 20211228
  Receipt Date: 20211228
  Transmission Date: 20220303
  Serious: No
  Sender: FDA-Public Use
  Company Number: None

PATIENT
  Age: 74 Year
  Sex: Female
  Weight: 83.25 kg

DRUGS (1)
  1. NITROFURANTOIN MONOHYDRATE MACROCRYSTALS [Suspect]
     Active Substance: NITROFURANTOIN\NITROFURANTOIN MONOHYDRATE
     Indication: Urinary tract infection
     Dosage: OTHER QUANTITY : 20 CAPSULE(S);?FREQUENCY : EVERY 12 HOURS;?
     Route: 048
     Dates: start: 20211211, end: 20211223

REACTIONS (5)
  - Pain in extremity [None]
  - Pyrexia [None]
  - Fatigue [None]
  - Dizziness [None]
  - Pain in extremity [None]

NARRATIVE: CASE EVENT DATE: 20211224
